FAERS Safety Report 17527458 (Version 1)
Quarter: 2020Q1

REPORT INFORMATION
  Report Type: Spontaneous
  Country: US (occurrence: US)
  Receive Date: 20200311
  Receipt Date: 20200311
  Transmission Date: 20200409
  Serious: No
  Sender: FDA-Public Use
  Company Number: None

PATIENT
  Age: 37 Year
  Sex: Female
  Weight: 54.45 kg

DRUGS (6)
  1. VITAMIN B12 [Concomitant]
     Active Substance: CYANOCOBALAMIN
  2. SOLOSEC [Suspect]
     Active Substance: SECNIDAZOLE
     Indication: BACTERIAL VAGINOSIS
     Dosage: ?          QUANTITY:1 GRANULES;?
     Route: 048
     Dates: start: 20200310, end: 20200311
  3. NUVARING [Concomitant]
     Active Substance: ETHINYL ESTRADIOL\ETONOGESTREL
  4. VITAMIN D [Concomitant]
     Active Substance: VITAMIN D NOS
  5. TUMARIC [Concomitant]
  6. PROBIOTIC [Concomitant]
     Active Substance: PROBIOTICS NOS

REACTIONS (1)
  - Chromaturia [None]

NARRATIVE: CASE EVENT DATE: 20200311
